FAERS Safety Report 8984901 (Version 1)
Quarter: 2012Q4

REPORT INFORMATION
  Report Type: 
  Country: US (occurrence: US)
  Receive Date: 20121226
  Receipt Date: 20121226
  Transmission Date: 20130627
  Serious: No
  Sender: FDA-Public Use
  Company Number: US-009507513-1212USA009768

PATIENT
  Age: 73 Year
  Sex: Female

DRUGS (2)
  1. REMERON [Suspect]
     Indication: ANTIDEPRESSANT THERAPY
     Dosage: cut her tablets in half
     Route: 048
     Dates: start: 20121112
  2. LIALDA [Concomitant]

REACTIONS (3)
  - Muscle spasms [Not Recovered/Not Resolved]
  - Chromaturia [Not Recovered/Not Resolved]
  - Chromaturia [Not Recovered/Not Resolved]
